FAERS Safety Report 6638840-0 (Version None)
Quarter: 2010Q1

REPORT INFORMATION
  Report Type: 
  Country: None (occurrence: None)
  Receive Date: 20100317
  Receipt Date: 20100310
  Transmission Date: 20100710
  Serious: Yes (Death, Hospitalization)
  Sender: FDA-Public Use
  Company Number: ES-ELI_LILLY_AND_COMPANY-ES201003003886

PATIENT
  Sex: Male
  Weight: 66 kg

DRUGS (3)
  1. GEMCITABINE HCL [Suspect]
     Indication: NON-SMALL CELL LUNG CANCER
     Dosage: 1250 MG/M2, ON DAYS ONE AND EIGHT EVERY 21 DAYS
     Route: 042
     Dates: start: 20091029, end: 20091112
  2. CETUXIMAB [Suspect]
     Indication: NON-SMALL CELL LUNG CANCER
     Dosage: 250 MG/M2, WEEKLY (1/W)
     Route: 042
     Dates: start: 20091029, end: 20091112
  3. CISPLATIN [Suspect]
     Indication: NON-SMALL CELL LUNG CANCER
     Dosage: 75 MG/M2, ON DAY ONE EVERY 21 DAYS
     Route: 042
     Dates: start: 20091029, end: 20091112

REACTIONS (2)
  - FEBRILE NEUTROPENIA [None]
  - THROMBOCYTOPENIA [None]
